FAERS Safety Report 5727738-8 (Version None)
Quarter: 2008Q2

REPORT INFORMATION
  Report Type: 
  Country: None (occurrence: None)
  Receive Date: 20080505
  Receipt Date: 20080428
  Transmission Date: 20081010
  Serious: Yes (Life-Threatening, Hospitalization, Disabling, Other)
  Sender: FDA-Public Use
  Company Number: GB-ROCHE-561162

PATIENT
  Age: 80 Year
  Sex: Male
  Weight: 64.2 kg

DRUGS (6)
  1. CAPECITABINE [Suspect]
     Indication: DRUG USE FOR UNKNOWN INDICATION
     Route: 065
     Dates: start: 20080411, end: 20080416
  2. ASPIRIN [Concomitant]
  3. COMBIVENT [Concomitant]
  4. COMBIVENT [Concomitant]
  5. SALMETEROL [Concomitant]
  6. SIMVASTATIN [Concomitant]

REACTIONS (3)
  - ACUTE MYOCARDIAL INFARCTION [None]
  - ARTERIOSPASM CORONARY [None]
  - CEREBRAL HAEMORRHAGE [None]
